FAERS Safety Report 20622821 (Version 3)
Quarter: 2022Q3

REPORT INFORMATION
  Report Type: Report from Study
  Country: JP (occurrence: JP)
  Receive Date: 20220322
  Receipt Date: 20220909
  Transmission Date: 20221026
  Serious: Yes (Death, Hospitalization)
  Sender: FDA-Public Use
  Company Number: JP-JNJFOC-A-CH2017-148932

PATIENT
  Age: 58 Year
  Sex: Female

DRUGS (24)
  1. TRACLEER [Suspect]
     Active Substance: BOSENTAN
     Indication: Scleroderma associated digital ulcer
     Dosage: 62.5 MG, BID
     Route: 048
     Dates: start: 20160308, end: 20160325
  2. TRACLEER [Suspect]
     Active Substance: BOSENTAN
     Dosage: 62.5 MG, QD
     Route: 048
     Dates: start: 20160413, end: 20160413
  3. TRACLEER [Suspect]
     Active Substance: BOSENTAN
     Dosage: 12.5 MG, QD
     Route: 048
     Dates: start: 20160414, end: 20160414
  4. TRACLEER [Suspect]
     Active Substance: BOSENTAN
     Dosage: 31.25 MG, QD
     Route: 048
     Dates: start: 20160415, end: 20160417
  5. TRACLEER [Suspect]
     Active Substance: BOSENTAN
     Dosage: 62.5 MG, QD
     Route: 048
     Dates: start: 20160418, end: 20160512
  6. TRACLEER [Suspect]
     Active Substance: BOSENTAN
     Dosage: 62.5 MG, BID
     Route: 048
     Dates: start: 20160513, end: 20160529
  7. TRACLEER [Suspect]
     Active Substance: BOSENTAN
     Dosage: 62.5 MG, QD
     Route: 048
     Dates: start: 20160530, end: 20160704
  8. TRACLEER [Suspect]
     Active Substance: BOSENTAN
     Dosage: 62.5 MG, BID
     Route: 048
     Dates: start: 20160705, end: 20171227
  9. ENALAPRIL MALEATE [Suspect]
     Active Substance: ENALAPRIL MALEATE
     Indication: Hypertension
     Dosage: 5 MG, UNK
     Route: 048
     Dates: start: 20160302, end: 20160327
  10. ACETAMINOPHEN [Suspect]
     Active Substance: ACETAMINOPHEN
     Indication: Infective aneurysm
     Dosage: DURING FEVER
     Route: 048
     Dates: start: 20160323, end: 20160327
  11. DILTIAZEM HYDROCHLORIDE [Concomitant]
     Active Substance: DILTIAZEM HYDROCHLORIDE
     Indication: Hypertension
     Route: 048
     Dates: start: 20160302, end: 20160327
  12. SODIUM GUALENATE MONOHYDRATE [Concomitant]
     Active Substance: SODIUM GUALENATE MONOHYDRATE
     Route: 048
     Dates: start: 20160302, end: 20160327
  13. ESOMEPRAZOLE MAGNESIUM [Concomitant]
     Active Substance: ESOMEPRAZOLE MAGNESIUM
     Indication: Duodenal ulcer
     Route: 048
     Dates: start: 20160307, end: 20160324
  14. LEVOFLOXACIN HEMIHYDRATE [Concomitant]
     Active Substance: LEVOFLOXACIN
     Indication: Infective aneurysm
     Route: 048
     Dates: start: 20160308, end: 20160315
  15. BERAPROST SODIUM [Concomitant]
     Active Substance: BERAPROST SODIUM
     Indication: Systemic scleroderma
     Route: 048
     Dates: start: 20160401, end: 20160406
  16. BERAPROST SODIUM [Concomitant]
     Active Substance: BERAPROST SODIUM
     Route: 048
     Dates: start: 20160407
  17. IMIDAPRIL HYDROCHLORIDE [Concomitant]
     Active Substance: IMIDAPRIL HYDROCHLORIDE
     Indication: Hypertension
     Route: 048
     Dates: start: 20160404, end: 20160413
  18. IMIDAPRIL HYDROCHLORIDE [Concomitant]
     Active Substance: IMIDAPRIL HYDROCHLORIDE
     Route: 048
     Dates: start: 20160414
  19. VONOPRAZAN FUMARATE [Concomitant]
     Active Substance: VONOPRAZAN FUMARATE
     Indication: Duodenal ulcer
     Route: 048
  20. HEPARINOID [Concomitant]
     Indication: Skin ulcer
     Route: 003
  21. DARBEPOETIN ALFA [Concomitant]
     Active Substance: DARBEPOETIN ALFA
     Indication: Scleroderma renal crisis
     Dosage: DIALYSIS TIME
     Dates: start: 20160311
  22. BISOPROLOL FUMARATE [Concomitant]
     Active Substance: BISOPROLOL FUMARATE
     Indication: Hypertension
     Route: 048
  23. AMLODIPINE [Concomitant]
     Active Substance: AMLODIPINE BESYLATE
     Indication: Hypertension
     Route: 048
  24. RABEPRAZOLE SODIUM [Concomitant]
     Active Substance: RABEPRAZOLE SODIUM
     Indication: Duodenal ulcer
     Route: 048

REACTIONS (14)
  - Drowning [Fatal]
  - Shunt occlusion [Recovering/Resolving]
  - Vascular occlusion [Recovering/Resolving]
  - Drug eruption [Recovered/Resolved]
  - Nausea [Recovering/Resolving]
  - Vomiting [Recovering/Resolving]
  - Decreased appetite [Recovering/Resolving]
  - Hepatic function abnormal [Recovering/Resolving]
  - Blood alkaline phosphatase increased [Recovering/Resolving]
  - Gamma-glutamyltransferase increased [Recovering/Resolving]
  - Aspartate aminotransferase increased [Recovering/Resolving]
  - Bronchitis [Recovering/Resolving]
  - Angioplasty [Unknown]
  - Drug eruption [Recovered/Resolved]

NARRATIVE: CASE EVENT DATE: 20160324
